FAERS Safety Report 26200201 (Version 1)
Quarter: 2025Q4

REPORT INFORMATION
  Report Type: Spontaneous
  Country: TW (occurrence: TW)
  Receive Date: 20251225
  Receipt Date: 20251225
  Transmission Date: 20260118
  Serious: Yes (Hospitalization, Other)
  Sender: AMGEN
  Company Number: TW-AMGEN-TWNSP2025250550

PATIENT
  Age: 72 Year
  Sex: Male

DRUGS (7)
  1. BEVACIZUMAB [Suspect]
     Active Substance: BEVACIZUMAB
     Indication: Hepatocellular carcinoma
     Dosage: 1200 MILLIGRAM FIXED DOSE
     Route: 065
     Dates: start: 202208
  2. ATEZOLIZUMAB [Concomitant]
     Active Substance: ATEZOLIZUMAB
     Indication: Hepatocellular carcinoma
     Dosage: 7.5 MILLIGRAM/KILOGRAM
     Route: 065
     Dates: start: 202208
  3. PEMBROLIZUMAB [Concomitant]
     Active Substance: PEMBROLIZUMAB
  4. SORAFENIB [Concomitant]
     Active Substance: SORAFENIB
     Dosage: 400 MILLIGRAM, QD
     Route: 065
     Dates: start: 202003
  5. LENVATINIB [Concomitant]
     Active Substance: LENVATINIB
     Dosage: 10 MILLIGRAM, QD
  6. LENVATINIB [Concomitant]
     Active Substance: LENVATINIB
     Dosage: 10 MILLIGRAM, QD
     Dates: start: 202406
  7. REGORAFENIB [Concomitant]
     Active Substance: REGORAFENIB
     Dosage: 80 MG/40MG QOD
     Route: 065
     Dates: start: 202010

REACTIONS (11)
  - Hepatocellular carcinoma [Unknown]
  - Fall [Unknown]
  - Dizziness [Unknown]
  - Hemiparesis [Unknown]
  - Wound complication [Unknown]
  - Haematochezia [Unknown]
  - Brain neoplasm [Unknown]
  - Intussusception [Unknown]
  - Intracranial tumour haemorrhage [Unknown]
  - Rash maculo-papular [Unknown]
  - Off label use [Unknown]
